FAERS Safety Report 8790895 (Version 2)
Quarter: 2012Q4

REPORT INFORMATION
  Report Type: Spontaneous
  Country: US (occurrence: None)
  Receive Date: 20120906
  Receipt Date: 20120907
  Transmission Date: 20130627
  Serious: Yes (Hospitalization, Other)
  Sender: FDA-Public Use
  Company Number: JPI-P-024792

PATIENT
  Age: 39 Year
  Sex: Female

DRUGS (5)
  1. XYREM [Suspect]
     Indication: CATAPLEXY
     Dosage: (2.25 gm,2 in 1 d)
     Route: 048
     Dates: start: 20110420
  2. XYREM [Suspect]
     Indication: CATAPLEXY
     Dosage: (titrating dose)
     Route: 048
  3. XYREM [Suspect]
     Indication: CATAPLEXY
     Dosage: (3.75 gm,2 in 1 d)
     Route: 048
     Dates: start: 20110815
  4. XYREM [Suspect]
     Indication: CATAPLEXY
  5. XYREM [Suspect]
     Indication: CATAPLEXY

REACTIONS (3)
  - Malaise [None]
  - Convulsion [None]
  - Oropharyngeal pain [None]
